FAERS Safety Report 18061636 (Version 1)
Quarter: 2020Q3

REPORT INFORMATION
  Report Type: Spontaneous
  Country: US (occurrence: US)
  Receive Date: 20200723
  Receipt Date: 20200723
  Transmission Date: 20201103
  Serious: Yes (Other)
  Sender: FDA-Public Use
  Company Number: US-KASDIRECT-2020-US-013242

PATIENT
  Age: 21 Month
  Sex: Female
  Weight: 12.7 kg

DRUGS (1)
  1. BABYGANICS SUNSCREEN 50 SPF [Suspect]
     Active Substance: OCTINOXATE\OCTISALATE\ZINC OXIDE
     Indication: THERAPEUTIC SKIN CARE TOPICAL
     Route: 061
     Dates: start: 202003, end: 20200612

REACTIONS (6)
  - Aggression [Recovered/Resolved]
  - Feeling abnormal [Unknown]
  - Staring [Recovered/Resolved]
  - Tardive dyskinesia [Recovered/Resolved]
  - Bruxism [Recovered/Resolved]
  - Unresponsive to stimuli [Unknown]

NARRATIVE: CASE EVENT DATE: 202003
